FAERS Safety Report 25906225 (Version 1)
Quarter: 2025Q4

REPORT INFORMATION
  Report Type: Spontaneous
  Country: US (occurrence: US)
  Receive Date: 20251010
  Receipt Date: 20251010
  Transmission Date: 20260118
  Serious: No
  Sender: Haleon PLC
  Company Number: US-HALEON-2266208

PATIENT

DRUGS (1)
  1. NICOTINE TRANSDERMAL SYSTEM [Suspect]
     Active Substance: NICOTINE
     Indication: Product used for unknown indication
     Dates: start: 20250919

REACTIONS (2)
  - Dizziness [Unknown]
  - Application site rash [Unknown]
